FAERS Safety Report 4584617-X (Version None)
Quarter: 2005Q1

REPORT INFORMATION
  Report Type: 
  Country: None (occurrence: None)
  Receive Date: 20050125
  Receipt Date: 20041117
  Transmission Date: 20050727
  Serious: No
  Sender: FDA-Public Use
  Company Number: US_0411108571

PATIENT
  Age: 85 Year
  Sex: Female
  Weight: 43 kg

DRUGS (6)
  1. FORTEO [Suspect]
     Indication: OSTEOPOROSIS
     Dosage: 20 UG DAY
     Dates: start: 20031101, end: 20041101
  2. ALBUTEROL [Concomitant]
  3. NEURONTIN (GABAPENTIN PFIZER) [Concomitant]
  4. PAXIL [Concomitant]
  5. CALTRATE 600 PLUS VITAMIN D [Concomitant]
  6. MULTIVITAMIN [Concomitant]

REACTIONS (5)
  - ANOREXIA [None]
  - NAUSEA [None]
  - TOOTH DISORDER [None]
  - TOOTH EXTRACTION [None]
  - TOOTH INJURY [None]
